FAERS Safety Report 5978021-7 (Version None)
Quarter: 2008Q4

REPORT INFORMATION
  Report Type: 
  Country: None (occurrence: None)
  Receive Date: 20081125
  Receipt Date: 20081119
  Transmission Date: 20090506
  Serious: Yes (Death)
  Sender: FDA-Public Use
  Company Number: 2008-181672-NL

PATIENT
  Age: 31 Year
  Sex: Male

DRUGS (6)
  1. NANDROLONE DECANOATE [Suspect]
     Dosage: DF
  2. TESTOSTERONE [Suspect]
     Dosage: DF
  3. STANOZOLOL [Suspect]
     Dosage: DF
  4. BOLDENON [Suspect]
     Dosage: DF
  5. CLENBUTEROL [Suspect]
     Dosage: DF
  6. TETRAHYDROCANNABINOL [Suspect]
     Dosage: DF

REACTIONS (3)
  - HYPOGLYCAEMIC COMA [None]
  - INTENTIONAL DRUG MISUSE [None]
  - TOXICOLOGIC TEST ABNORMAL [None]
